FAERS Safety Report 4905986-4 (Version None)
Quarter: 2006Q1

REPORT INFORMATION
  Report Type: 
  Country: None (occurrence: None)
  Receive Date: 20060206
  Receipt Date: 20060119
  Transmission Date: 20060701
  Serious: Yes (Other)
  Sender: FDA-Public Use
  Company Number: 2006010961

PATIENT
  Sex: Female
  Weight: 48.5349 kg

DRUGS (10)
  1. ZOLOFT [Suspect]
     Indication: DEPRESSION
     Dosage: 50 MG (50 MG, 1 IN 1 D), ORAL
     Route: 048
  2. ZOLOFT [Suspect]
     Indication: OBSESSIVE-COMPULSIVE DISORDER
     Dosage: 50 MG (50 MG, 1 IN 1 D), ORAL
     Route: 048
  3. ZYRTEC [Suspect]
     Indication: HYPERSENSITIVITY
     Dosage: 10 MG (10 MG, 1 IN 1 D), ORAL
     Route: 048
     Dates: start: 20050101
  4. ATARAX [Suspect]
     Indication: HYPERSENSITIVITY
     Dates: start: 20050101, end: 20050101
  5. BENADRYL [Suspect]
     Indication: HYPERSENSITIVITY
  6. HYDROCHLOROTHIAZIDE [Concomitant]
  7. KLONOPIN [Concomitant]
  8. TOPAMAX [Concomitant]
  9. AMBIEN [Concomitant]
  10. CONTRACEPTIVE, (CONTRACEPTIVE,) [Concomitant]

REACTIONS (21)
  - ABORTION INDUCED [None]
  - ABORTION SPONTANEOUS [None]
  - AGGRESSION [None]
  - ARTHRITIS [None]
  - BRONCHITIS [None]
  - BURNING SENSATION [None]
  - CAESAREAN SECTION [None]
  - DRUG EXPOSURE DURING PREGNANCY [None]
  - DRUG INTOLERANCE [None]
  - ECONOMIC PROBLEM [None]
  - ECTOPIC PREGNANCY [None]
  - ECTOPIC PREGNANCY TERMINATION [None]
  - INFLAMMATION [None]
  - IRRITABLE BOWEL SYNDROME [None]
  - LACERATION [None]
  - MOVEMENT DISORDER [None]
  - MULTIPLE ALLERGIES [None]
  - PNEUMONIA [None]
  - POSTPARTUM DEPRESSION [None]
  - PREGNANCY [None]
  - SKIN BURNING SENSATION [None]
